FAERS Safety Report 10576226 (Version 2)
Quarter: 2014Q4

REPORT INFORMATION
  Report Type: Spontaneous
  Country: US (occurrence: US)
  Receive Date: 20141111
  Receipt Date: 20141211
  Transmission Date: 20150529
  Serious: No
  Sender: FDA-Public Use
  Company Number: US-PFIZER INC-2014308350

PATIENT
  Age: 91 Year
  Sex: Female

DRUGS (2)
  1. ASA [Concomitant]
     Active Substance: ASPIRIN
  2. XELJANZ [Suspect]
     Active Substance: TOFACITINIB CITRATE
     Indication: RHEUMATOID ARTHRITIS
     Dosage: 5 MG, TWICE A DAY
     Route: 048
     Dates: start: 201409

REACTIONS (8)
  - Hypertension [Unknown]
  - Swelling [Unknown]
  - Pain [Unknown]
  - Lung disorder [Unknown]
  - Feeling hot [Unknown]
  - Peripheral swelling [Unknown]
  - Contusion [Unknown]
  - Muscle spasms [Unknown]

NARRATIVE: CASE EVENT DATE: 20141208
